FAERS Safety Report 19744739 (Version 1)
Quarter: 2021Q3

REPORT INFORMATION
  Report Type: Spontaneous
  Country: IT (occurrence: IT)
  Receive Date: 20210825
  Receipt Date: 20210825
  Transmission Date: 20211014
  Serious: Yes (Hospitalization)
  Sender: FDA-Public Use
  Company Number: IT-TEVA-2021-IT-1944485

PATIENT
  Age: 22 Year
  Sex: Female

DRUGS (10)
  1. INDOMETHACIN. [Concomitant]
     Active Substance: INDOMETHACIN
     Indication: MYOCARDITIS
     Route: 065
     Dates: start: 2005
  2. FLECAINIDE [Suspect]
     Active Substance: FLECAINIDE
     Indication: VENTRICULAR EXTRASYSTOLES
     Route: 065
     Dates: start: 2015
  3. AZATHIOPRINE. [Suspect]
     Active Substance: AZATHIOPRINE
     Indication: AUTOIMMUNE MYOCARDITIS
     Route: 065
     Dates: start: 2015
  4. ACETYLSALICYLIC ACID [Concomitant]
     Active Substance: ASPIRIN
     Indication: MYOCARDITIS
     Route: 065
     Dates: start: 2005
  5. FOLIC ACID. [Concomitant]
     Active Substance: FOLIC ACID
     Indication: SUPPLEMENTATION THERAPY
     Route: 065
     Dates: start: 2015
  6. METHOTREXATE. [Suspect]
     Active Substance: METHOTREXATE
     Indication: AUTOIMMUNE MYOCARDITIS
     Route: 058
     Dates: start: 2015
  7. PREDNISONE. [Concomitant]
     Active Substance: PREDNISONE
     Indication: AUTOIMMUNE MYOCARDITIS
     Dosage: 1 MG/KG BODY WEIGHT
     Route: 065
     Dates: start: 2015
  8. PROPAFENONE. [Suspect]
     Active Substance: PROPAFENONE
     Indication: VENTRICULAR EXTRASYSTOLES
     Route: 065
     Dates: start: 2015
  9. BISOPROLOL [Suspect]
     Active Substance: BISOPROLOL
     Indication: VENTRICULAR EXTRASYSTOLES
     Route: 065
     Dates: start: 2015
  10. COLCHICINE. [Concomitant]
     Active Substance: COLCHICINE
     Indication: MYOCARDITIS
     Route: 065
     Dates: start: 2005

REACTIONS (3)
  - Drug ineffective [Unknown]
  - Liver function test abnormal [Unknown]
  - Off label use [Unknown]

NARRATIVE: CASE EVENT DATE: 2015
